FAERS Safety Report 5051881-2 (Version None)
Quarter: 2006Q3

REPORT INFORMATION
  Report Type: 
  Country: None (occurrence: None)
  Receive Date: 20060714
  Receipt Date: 20060606
  Transmission Date: 20061208
  Serious: Yes (Death)
  Sender: FDA-Public Use
  Company Number: US-BOEHRINGER INGELHEIM PHARMACEUTICALS, INC.-2006-BP-06520BP

PATIENT
  Age: 47 Year
  Sex: Male
  Weight: 63.96 kg

DRUGS (9)
  1. APTIVUS/RITONAVIR CAPSULES [Suspect]
     Indication: HIV INFECTION
     Dosage: TPV 1000MG / RTV ?
     Route: 048
     Dates: start: 20050622, end: 20050714
  2. APTIVUS/RITONAVIR CAPSULES [Suspect]
     Indication: ACQUIRED IMMUNODEFICIENCY SYNDROME
  3. CLINDAMYCIN [Concomitant]
     Dates: start: 20010101, end: 20050714
  4. DARAPRIM [Concomitant]
     Dates: start: 20010101, end: 20050714
  5. DAPSONE [Concomitant]
     Route: 048
     Dates: start: 20010101, end: 20050714
  6. SPORANOX [Concomitant]
     Dates: start: 20050507, end: 20050714
  7. ZITHROMAX [Concomitant]
     Dates: start: 20050309, end: 20050714
  8. LEUCOVORIN CALCIUM [Concomitant]
     Dates: start: 20010101, end: 20050714
  9. TRUVADA [Concomitant]
     Dates: end: 20050714

REACTIONS (4)
  - DEATH [None]
  - ORAL INTAKE REDUCED [None]
  - REFUSAL OF TREATMENT BY PATIENT [None]
  - TREATMENT NONCOMPLIANCE [None]
